FAERS Safety Report 7096783-5 (Version None)
Quarter: 2010Q4

REPORT INFORMATION
  Report Type: 
  Country: None (occurrence: None)
  Receive Date: 20101111
  Receipt Date: 20100428
  Transmission Date: 20110411
  Serious: No
  Sender: FDA-Public Use
  Company Number: US-KINGPHARMUSA00001-K201000520

PATIENT
  Age: 89 Year
  Sex: Female
  Weight: 49.433 kg

DRUGS (1)
  1. FLECTOR [Suspect]
     Indication: BACK PAIN
     Dosage: UNK PATCH, UNK
     Route: 061
     Dates: start: 20100401, end: 20100401

REACTIONS (1)
  - BLOOD PRESSURE INCREASED [None]
